FAERS Safety Report 7778137-9 (Version None)
Quarter: 2011Q3

REPORT INFORMATION
  Report Type: 
  Country: None (occurrence: None)
  Receive Date: 20110926
  Receipt Date: 20100821
  Transmission Date: 20111222
  Serious: Yes (Hospitalization)
  Sender: FDA-Public Use
  Company Number: US-MUTUAL PHARMACEUTICAL COMPANY, INC.-2010P1001011

PATIENT
  Age: 6 Year
  Sex: Female

DRUGS (1)
  1. BACTRIM [Suspect]
     Route: 048
     Dates: start: 20100801, end: 20100801

REACTIONS (3)
  - HEPATITIS [None]
  - SKIN EXFOLIATION [None]
  - RASH GENERALISED [None]
